FAERS Safety Report 21556050 (Version 1)
Quarter: 2022Q4

REPORT INFORMATION
  Report Type: Report from Study
  Country: US (occurrence: US)
  Receive Date: 20221104
  Receipt Date: 20221104
  Transmission Date: 20230113
  Serious: Yes (Other)
  Sender: FDA-Public Use
  Company Number: US-ABBVIE-4187747

PATIENT
  Age: 51 Year
  Sex: Female

DRUGS (4)
  1. SKYRIZI [Suspect]
     Active Substance: RISANKIZUMAB-RZAA
     Indication: Psoriasis
     Route: 058
     Dates: start: 202201
  2. SKYRIZI [Suspect]
     Active Substance: RISANKIZUMAB-RZAA
     Indication: Psoriasis
  3. Pfizer/BioNTech [Concomitant]
     Indication: COVID-19 immunisation
     Route: 030
     Dates: start: 20210322, end: 20210322
  4. Pfizer/BioNTech [Concomitant]
     Indication: COVID-19 immunisation
     Route: 030
     Dates: start: 20220412, end: 20220412

REACTIONS (2)
  - Foot operation [Unknown]
  - Bone marrow disorder [Unknown]

NARRATIVE: CASE EVENT DATE: 20220501
